FAERS Safety Report 9109003 (Version 6)
Quarter: 2014Q2

REPORT INFORMATION
  Report Type: Spontaneous
  Country: US (occurrence: US)
  Receive Date: 20130222
  Receipt Date: 20140425
  Transmission Date: 20141212
  Serious: Yes (Hospitalization, Disabling, Other)
  Sender: FDA-Public Use
  Company Number: US-MERCK-1302USA008758

PATIENT
  Sex: Female
  Weight: 63.39 kg

DRUGS (8)
  1. FOSAMAX [Suspect]
     Indication: OSTEOPOROSIS
     Dosage: 70 MG, QW
     Route: 048
     Dates: start: 20050526
  2. FOSAMAX [Suspect]
     Indication: OSTEOPENIA
  3. CALCIUM (UNSPECIFIED) (+) VITAMIN D (UNSPECIFIED) [Concomitant]
     Dosage: 600 MG, BID
     Dates: start: 2003
  4. VITAMINS (UNSPECIFIED) [Concomitant]
     Dosage: UNK, QD
     Dates: start: 2003
  5. HORMONES (UNSPECIFIED) [Concomitant]
     Dosage: UNK
     Dates: start: 2000
  6. ASPIRIN [Concomitant]
     Indication: HEADACHE
     Dosage: 325 MG, QD
     Dates: start: 1997
  7. IMITREX (SUMATRIPTAN) [Concomitant]
     Indication: HEADACHE
     Dosage: 50 - 100 MG
     Route: 048
     Dates: start: 1997
  8. ALENDRONATE SODIUM [Suspect]
     Indication: OSTEOPENIA
     Dosage: 70 MG, QW
     Route: 048
     Dates: start: 20080101, end: 200904

REACTIONS (30)
  - Intramedullary rod insertion [Not Recovered/Not Resolved]
  - Rotator cuff repair [Unknown]
  - Haemorrhagic anaemia [Unknown]
  - Fall [Unknown]
  - Femur fracture [Recovered/Resolved]
  - Periodontal operation [Unknown]
  - Osteoarthritis [Unknown]
  - Rotator cuff syndrome [Unknown]
  - Lordosis [Unknown]
  - Spinal osteoarthritis [Unknown]
  - Spondylolisthesis [Unknown]
  - Bone scan abnormal [Unknown]
  - Asthma [Unknown]
  - Osteoarthritis [Unknown]
  - Osteoarthritis [Unknown]
  - Foot operation [Unknown]
  - Cerumen impaction [Unknown]
  - Dyspnoea [Unknown]
  - Lumbar radiculopathy [Unknown]
  - Aspiration joint [Unknown]
  - Antinuclear antibody increased [Unknown]
  - Cardiac murmur [Unknown]
  - Biopsy breast [Unknown]
  - Rotator cuff syndrome [Unknown]
  - Joint effusion [Unknown]
  - Arthritis [Unknown]
  - Cerebral ischaemia [Unknown]
  - Sciatica [Unknown]
  - Glaucoma [Unknown]
  - Pain in extremity [Unknown]
